FAERS Safety Report 9856822 (Version 2)
Quarter: 2014Q2

REPORT INFORMATION
  Report Type: Spontaneous
  Country: US (occurrence: None)
  Receive Date: 20140128
  Receipt Date: 20140522
  Transmission Date: 20141212
  Serious: Yes (Other)
  Sender: FDA-Public Use
  Company Number: 2014SA009631

PATIENT
  Age: 65 Year
  Sex: Male

DRUGS (10)
  1. GOLD BOND ULTIMATE PROTECTION [Suspect]
     Indication: DRY SKIN
     Dates: start: 20140119
  2. GABAPENTIN [Concomitant]
  3. SPIRONOLACTONE [Concomitant]
  4. LANTUS [Concomitant]
  5. HUMALOG [Concomitant]
  6. AMLODIPINE [Concomitant]
  7. BESILATE [Concomitant]
  8. ASPIRIN [Concomitant]
  9. CRESTOR [Concomitant]
  10. ZYRTEC [Concomitant]

REACTIONS (4)
  - Chemical injury [None]
  - Application site pruritus [None]
  - Application site discolouration [None]
  - Application site burn [None]
